FAERS Safety Report 4343669-2 (Version None)
Quarter: 2004Q2

REPORT INFORMATION
  Report Type: 
  Country: None (occurrence: None)
  Receive Date: 20040419
  Receipt Date: 20040407
  Transmission Date: 20050107
  Serious: Yes (Other)
  Sender: FDA-Public Use
  Company Number: CEL-2003-04227-ROC

PATIENT
  Age: 13 Year
  Sex: Male

DRUGS (1)
  1. METADATE CD [Suspect]

REACTIONS (1)
  - PSYCHOTIC DISORDER [None]
